FAERS Safety Report 4586942-5 (Version None)
Quarter: 2005Q1

REPORT INFORMATION
  Report Type: 
  Country: None (occurrence: None)
  Receive Date: 20050218
  Receipt Date: 20050210
  Transmission Date: 20050727
  Serious: Yes (Hospitalization, Other)
  Sender: FDA-Public Use
  Company Number: SE-BRISTOL-MYERS SQUIBB COMPANY-12857223

PATIENT
  Age: 64 Year
  Sex: Female

DRUGS (5)
  1. TAXOL [Suspect]
     Indication: BREAST CANCER
     Route: 042
     Dates: start: 19981124, end: 19981124
  2. GLUCOPHAGE [Concomitant]
  3. BETAPRED [Concomitant]
  4. STESOLID [Concomitant]
  5. NAVOBAN [Concomitant]

REACTIONS (7)
  - ASCITES [None]
  - DYSPNOEA [None]
  - HEPATIC CIRRHOSIS [None]
  - HEPATIC FIBROSIS [None]
  - HEPATITIS [None]
  - HEPATOMEGALY [None]
  - VARICES OESOPHAGEAL [None]
